FAERS Safety Report 4678465-X (Version None)
Quarter: 2005Q1

REPORT INFORMATION
  Report Type: 
  Country: None (occurrence: None)
  Receive Date: 20041020
  Receipt Date: 20041020
  Transmission Date: 20050727
  Serious: No
  Sender: FDA-Public Use
  Company Number: None

PATIENT
  Age: 51 Year
  Sex: Female
  Weight: 139.2543 kg

DRUGS (1)
  1. GLOCOVANCE (GENERIC) [Suspect]
     Indication: DIABETES MELLITUS
     Dosage: 2.5 MG PO TID
     Route: 048

REACTIONS (4)
  - ABDOMINAL PAIN [None]
  - NAUSEA [None]
  - THERAPEUTIC RESPONSE UNEXPECTED WITH DRUG SUBSTITUTION [None]
  - VOMITING [None]
